FAERS Safety Report 4401963-0 (Version None)
Quarter: 2004Q3

REPORT INFORMATION
  Report Type: 
  Country: None (occurrence: None)
  Receive Date: 20040714
  Receipt Date: 20040629
  Transmission Date: 20050211
  Serious: Yes (Hospitalization)
  Sender: FDA-Public Use
  Company Number: USA040671317

PATIENT
  Age: 32 Year
  Sex: Male

DRUGS (2)
  1. HUMALOG [Suspect]
     Dates: start: 20030601
  2. LANTUS [Concomitant]

REACTIONS (4)
  - BLOOD GLUCOSE FLUCTUATION [None]
  - PHARMACEUTICAL PRODUCT COMPLAINT [None]
  - REGURGITATION OF FOOD [None]
  - TREATMENT NONCOMPLIANCE [None]
